FAERS Safety Report 17211011 (Version 3)
Quarter: 2020Q1

REPORT INFORMATION
  Report Type: Report from Study
  Country: US (occurrence: US)
  Receive Date: 20191227
  Receipt Date: 20200228
  Transmission Date: 20200409
  Serious: Yes (Hospitalization)
  Sender: FDA-Public Use
  Company Number: US-BAXTER-2019BAX025980

PATIENT
  Age: 3 Year
  Sex: Male
  Weight: 19.2 kg

DRUGS (32)
  1. INCB018424 [Suspect]
     Active Substance: RUXOLITINIB
     Dosage: FORM OF ADMINISTRATION- TABLET, LAST DOSE PRIOR TO FEBRILE NEUTROPENIA (FIRST EPISODE)
     Route: 048
     Dates: start: 20191107, end: 20191107
  2. INCB018424 [Suspect]
     Active Substance: RUXOLITINIB
     Dosage: FORM OF ADMINISTRATION- TABLET, LAST DOSE PRIOR TO FEBRILE NEUTROPENIA (SECOND EPISODE)
     Route: 048
     Dates: start: 20191204, end: 20191204
  3. PEGASPARGASE [Suspect]
     Active Substance: PEGASPARGASE
     Route: 065
     Dates: start: 20200103
  4. DOXIL [Suspect]
     Active Substance: DOXORUBICIN HYDROCHLORIDE
     Indication: B PRECURSOR TYPE ACUTE LEUKAEMIA
     Dosage: LAST DOSE PRIOR TO FEBRILE NEUTROPENIA (FIRST AND SECOND EPISODE)
     Route: 042
     Dates: start: 20191108, end: 20191108
  5. DOXIL [Suspect]
     Active Substance: DOXORUBICIN HYDROCHLORIDE
     Dosage: FIRST DOSE
     Route: 042
     Dates: start: 20191025, end: 20191108
  6. CYCLOPHOSPHAMIDE FOR INJECTION, USP [Suspect]
     Active Substance: CYCLOPHOSPHAMIDE
     Indication: B PRECURSOR TYPE ACUTE LEUKAEMIA
     Dosage: FIRST DOSE
     Route: 042
     Dates: start: 20190523
  7. CYCLOPHOSPHAMIDE FOR INJECTION, USP [Suspect]
     Active Substance: CYCLOPHOSPHAMIDE
     Dosage: LAST DOSE PRIOR TO FEBRILE NEUTROPENIA (SECOND EPISODE)
     Route: 042
     Dates: start: 20191122, end: 20191122
  8. CYCLOPHOSPHAMIDE FOR INJECTION, USP [Suspect]
     Active Substance: CYCLOPHOSPHAMIDE
     Dosage: DOSE CHANGED DUE TO WEIGHT GAIN
     Route: 042
  9. DEXAMETHASONE. [Suspect]
     Active Substance: DEXAMETHASONE
     Dosage: LAST DOSE PRIOR TO FEBRILE NEUTROPENIA (FIRST AND SECOND EPISODE)
     Route: 048
     Dates: start: 20191114, end: 20191114
  10. METHOTREXATE. [Suspect]
     Active Substance: METHOTREXATE
     Dosage: INTERIM MAINTENANCE 2
     Route: 037
     Dates: start: 20200102
  11. INCB018424 [Suspect]
     Active Substance: RUXOLITINIB
     Indication: B PRECURSOR TYPE ACUTE LEUKAEMIA
     Dosage: FORM OF ADMINISTRATION- TABLET, DURATION- 6 MONTHS 13 DAYS; FIRST DOSE
     Route: 048
     Dates: start: 20190523, end: 20191205
  12. VINCRISTINE [Suspect]
     Active Substance: VINCRISTINE
     Dosage: FIRST DOSE, DURATION: 6 MONTHS 15 DAYS
     Route: 042
     Dates: start: 20190606, end: 20191220
  13. CYTARABINE. [Suspect]
     Active Substance: CYTARABINE
     Dosage: LAST DOSE PRIOR TO FEBRILE NEUTROPENIA (SECOND EPISODE)
     Route: 042
     Dates: start: 20191202, end: 20191202
  14. THIOGUANINE [Suspect]
     Active Substance: THIOGUANINE
     Dosage: TABLET, LAST DOSE PRIOR TO FEBRILE NEUTROPENIA (SECOND EPISODE)
     Route: 048
     Dates: start: 20191204, end: 20191204
  15. METHOTREXATE. [Suspect]
     Active Substance: METHOTREXATE
     Indication: B PRECURSOR TYPE ACUTE LEUKAEMIA
     Dosage: FIRST DOSE, DURATION: 6 MONTHS 28 DAYS
     Route: 037
     Dates: start: 20190523, end: 20191220
  16. MERCAPTOPURINE. [Suspect]
     Active Substance: MERCAPTOPURINE
     Dosage: LAST DOSE PRIOR TO THE SAE OF FEBRILE NEUTROPENIA (FIRST AND SECOND OCCURRENCE)
     Route: 048
     Dates: start: 20191010, end: 20191010
  17. CYTARABINE. [Suspect]
     Active Substance: CYTARABINE
     Dosage: LAST DOSE PRIOR TO FEBRILE NEUTROPENIA (FIRST EPISODE)
     Route: 042
     Dates: start: 20190714, end: 20190714
  18. THIOGUANINE [Suspect]
     Active Substance: THIOGUANINE
     Dosage: TABLET
     Route: 048
     Dates: start: 20191206
  19. INCB018424 [Suspect]
     Active Substance: RUXOLITINIB
     Dosage: FORM OF ADMINISTRATION- TABLET, INTERIM MAINTENANCE 2
     Route: 048
     Dates: start: 20200102
  20. CYTARABINE. [Suspect]
     Active Substance: CYTARABINE
     Dosage: DOSE CHANGED DUE TO WEIGHT GAIN
     Route: 042
  21. METHOTREXATE. [Suspect]
     Active Substance: METHOTREXATE
     Dosage: LAST DOSE PRIOR TO FEBRILE NEUTROPENIA (SECOND EPISODE)
     Route: 037
     Dates: start: 20191202, end: 20191202
  22. CYCLOPHOSPHAMIDE FOR INJECTION, USP [Suspect]
     Active Substance: CYCLOPHOSPHAMIDE
     Dosage: LAST DOSE PRIOR TO FEBRILE NEUTROPENIA (FIRST EPISODE)
     Route: 042
     Dates: start: 20190705, end: 20190705
  23. VINCRISTINE [Suspect]
     Active Substance: VINCRISTINE
     Indication: B PRECURSOR TYPE ACUTE LEUKAEMIA
     Dosage: LAST DOSE PRIOR TO FEBRILE NEUTROPENIA (FIRST AND SECOND OCCURRENCE)
     Route: 042
     Dates: start: 20191108, end: 20191108
  24. VINCRISTINE [Suspect]
     Active Substance: VINCRISTINE
     Dosage: INTERIM MAINTENANCE 2
     Route: 042
     Dates: start: 20200102
  25. INCB018424 [Suspect]
     Active Substance: RUXOLITINIB
     Dosage: FORM OF ADMINISTRATION- TABLET
     Route: 048
     Dates: start: 20191206, end: 20191220
  26. THIOGUANINE [Suspect]
     Active Substance: THIOGUANINE
     Indication: B PRECURSOR TYPE ACUTE LEUKAEMIA
     Dosage: TABLET; FIRST DOSE
     Route: 048
     Dates: start: 20191122, end: 20191205
  27. METHOTREXATE. [Suspect]
     Active Substance: METHOTREXATE
     Dosage: LAST DOSE PRIOR TO FEBRILE NEUTROPENIA (FIRST EPISODE)
     Route: 037
     Dates: start: 20191025, end: 20191025
  28. MERCAPTOPURINE. [Suspect]
     Active Substance: MERCAPTOPURINE
     Indication: B PRECURSOR TYPE ACUTE LEUKAEMIA
     Dosage: FIRST DOSE, DURATION: 4 MONTHS 18 DAYS
     Route: 048
     Dates: start: 20190523, end: 20191010
  29. DEXAMETHASONE. [Suspect]
     Active Substance: DEXAMETHASONE
     Indication: B PRECURSOR TYPE ACUTE LEUKAEMIA
     Dosage: FIRST DOSE
     Route: 048
     Dates: start: 20191025, end: 20191114
  30. CYTARABINE. [Suspect]
     Active Substance: CYTARABINE
     Indication: B PRECURSOR TYPE ACUTE LEUKAEMIA
     Dosage: FIRST DOSE
     Route: 042
     Dates: start: 20190523
  31. PEGASPARGASE [Suspect]
     Active Substance: PEGASPARGASE
     Indication: B PRECURSOR TYPE ACUTE LEUKAEMIA
     Dosage: FIRST DOSE, DURATION: 6 MONTHS 15 DAYS
     Route: 042
     Dates: start: 20190606, end: 20191220
  32. PEGASPARGASE [Suspect]
     Active Substance: PEGASPARGASE
     Dosage: LAST DOSE PRIOR TO THE SAE OF FEBRILE NEUTROPENIA (FIRST AND SECOND OCCURRENCE)
     Route: 042
     Dates: start: 20191028, end: 20191028

REACTIONS (2)
  - Febrile neutropenia [Recovered/Resolved]
  - Febrile neutropenia [Recovered/Resolved]

NARRATIVE: CASE EVENT DATE: 20191116
